FAERS Safety Report 8390964-6 (Version None)
Quarter: 2012Q2

REPORT INFORMATION
  Report Type: 
  Country: None (occurrence: None)
  Receive Date: 20120529
  Receipt Date: 20120524
  Transmission Date: 20120825
  Serious: Yes (Hospitalization, Other)
  Sender: FDA-Public Use
  Company Number: PHEH2012US010115

PATIENT
  Sex: Female
  Weight: 66.4 kg

DRUGS (11)
  1. GILENYA [Suspect]
     Indication: MULTIPLE SCLEROSIS
     Dosage: 0.5 MG, QD
     Route: 048
     Dates: start: 20120410
  2. MECLIZINE [Concomitant]
     Dosage: 25 MG, TID
     Route: 048
  3. DIAZEPAM [Concomitant]
     Dosage: 1 DF, BID
     Route: 048
  4. NAPROXEN (ALEVE) [Concomitant]
  5. ZOLPIDEM [Concomitant]
     Dosage: 5 MG, UNK
  6. COPAXONE [Concomitant]
  7. SULFAMETHOXAZOLE + TRIMETHOPRIM [Concomitant]
     Route: 048
  8. ESCITALOPRAM [Concomitant]
     Dosage: 10 MG, QD
     Route: 048
  9. GABAPENTIN [Concomitant]
     Dosage: 300 MG, UNK
  10. AZELASTINE HCL [Concomitant]
     Dosage: UNK UKN, QHS
  11. AZELASTINE HCL [Concomitant]
     Dosage: UNK UKN, PRN

REACTIONS (4)
  - MULTIPLE SCLEROSIS RELAPSE [None]
  - NAUSEA [None]
  - VOMITING [None]
  - CENTRAL NERVOUS SYSTEM LESION [None]
